FAERS Safety Report 9376340 (Version 1)
Quarter: 2013Q3

REPORT INFORMATION
  Report Type: Spontaneous
  Country: GB (occurrence: GB)
  Receive Date: 20130701
  Receipt Date: 20130701
  Transmission Date: 20140515
  Serious: Yes (Hospitalization, Other)
  Sender: FDA-Public Use
  Company Number: GB-JNJFOC-20130613996

PATIENT
  Age: 65 Year
  Sex: Male

DRUGS (11)
  1. ITRACONAZOLE [Suspect]
     Indication: PRODUCT USED FOR UNKNOWN INDICATION
     Route: 048
  2. ASPIRIN [Concomitant]
     Route: 065
  3. CARBOCISTEINA XAROPE (CARBOCYSTEINE) [Concomitant]
     Route: 065
  4. FUROSEMIDE [Concomitant]
     Route: 048
  5. IPRATROPIUM BROMIDE [Concomitant]
     Route: 065
  6. LANSOPRAZOLE [Concomitant]
     Route: 065
  7. METOCLOPRAMIDE [Concomitant]
     Route: 065
  8. MORPHINE SULPHATE [Concomitant]
     Route: 065
  9. PARACETAMOL [Concomitant]
     Route: 048
  10. SALBUTAMOL [Concomitant]
     Route: 065
  11. SOTALOL [Concomitant]
     Route: 065

REACTIONS (1)
  - Cardiac failure [Not Recovered/Not Resolved]
